FAERS Safety Report 10045427 (Version 1)
Quarter: 2014Q1

REPORT INFORMATION
  Report Type: Spontaneous
  Country: DE (occurrence: DE)
  Receive Date: 20140328
  Receipt Date: 20140328
  Transmission Date: 20141002
  Serious: Yes (Life-Threatening)
  Sender: FDA-Public Use
  Company Number: DE-PFIZER INC-2014084132

PATIENT
  Age: 70 Year
  Sex: Male
  Weight: 89 kg

DRUGS (3)
  1. TEMSIROLIMUS [Suspect]
     Indication: RENAL CELL CARCINOMA
     Dosage: 25 MG, DAILY
     Route: 042
     Dates: start: 20140218
  2. FENISTIL [Concomitant]
     Indication: PREMEDICATION
     Dosage: 4 MG, UNK
     Route: 042
     Dates: start: 20140218
  3. RANITIDINE [Concomitant]
     Indication: PREMEDICATION
     Dosage: 50 MG, UNK
     Route: 042
     Dates: start: 20140218

REACTIONS (1)
  - Anaphylactic shock [Recovered/Resolved]
